FAERS Safety Report 12799860 (Version 1)
Quarter: 2016Q3

REPORT INFORMATION
  Report Type: Spontaneous
  Country: US (occurrence: US)
  Receive Date: 20160930
  Receipt Date: 20160930
  Transmission Date: 20161109
  Serious: No
  Sender: FDA-Public Use
  Company Number: US-ELI_LILLY_AND_COMPANY-US201609010572

PATIENT
  Age: 22 Year
  Sex: Male

DRUGS (1)
  1. STRATTERA [Suspect]
     Active Substance: ATOMOXETINE HYDROCHLORIDE
     Indication: PRODUCT USED FOR UNKNOWN INDICATION
     Dosage: UNK, UNKNOWN
     Route: 065

REACTIONS (8)
  - Fatigue [Not Recovered/Not Resolved]
  - Oral discomfort [Unknown]
  - Chest pain [Not Recovered/Not Resolved]
  - Wrong patient received medication [Unknown]
  - Throat irritation [Not Recovered/Not Resolved]
  - Cough [Unknown]
  - Nausea [Not Recovered/Not Resolved]
  - Hypoaesthesia oral [Not Recovered/Not Resolved]
